FAERS Safety Report 11358754 (Version 2)
Quarter: 2015Q3

REPORT INFORMATION
  Report Type: Spontaneous
  Country: US (occurrence: None)
  Receive Date: 20150806
  Receipt Date: 20150825
  Transmission Date: 20151125
  Serious: Yes (Hospitalization)
  Sender: FDA-Public Use
  Company Number: 1713747-2015-999246

PATIENT
  Age: 68 Year
  Sex: Female
  Weight: 60.2 kg

DRUGS (6)
  1. CLONIDINE. [Concomitant]
     Active Substance: CLONIDINE
  2. IRON [Concomitant]
     Active Substance: IRON
  3. HYDRALAZINE [Concomitant]
     Active Substance: HYDRALAZINE HYDROCHLORIDE
  4. BENAZEPRIL [Concomitant]
     Active Substance: BENAZEPRIL HYDROCHLORIDE
  5. SULCRATE [Concomitant]
     Active Substance: SUCRALFATE
  6. DELFLEX [Suspect]
     Active Substance: CALCIUM CHLORIDE\DEXTROSE MONOHYDRATE\MAGNESIUM CHLORIDE\SODIUM CHLORIDE\SODIUM LACTATE
     Indication: PERITONEAL DIALYSIS
     Route: 033
     Dates: start: 201503

REACTIONS (5)
  - Vomiting [None]
  - Nausea [None]
  - Hernia [None]
  - Hypotension [None]
  - Weight decreased [None]

NARRATIVE: CASE EVENT DATE: 201503
